FAERS Safety Report 15020905 (Version 1)
Quarter: 2018Q2

REPORT INFORMATION
  Report Type: Spontaneous
  Country: US (occurrence: US)
  Receive Date: 20180618
  Receipt Date: 20180618
  Transmission Date: 20180711
  Serious: No
  Sender: FDA-Public Use
  Company Number: US-PFIZER INC-2018245529

PATIENT
  Sex: Male

DRUGS (1)
  1. TOFACITINIB CITRATE [Suspect]
     Active Substance: TOFACITINIB CITRATE
     Indication: ALOPECIA AREATA
     Dosage: 60 MG, UNK

REACTIONS (5)
  - Counterfeit product administered [Unknown]
  - Suspected counterfeit product [Unknown]
  - Overdose [Unknown]
  - Product use in unapproved indication [Unknown]
  - Malaise [Unknown]
